FAERS Safety Report 7676676-2 (Version None)
Quarter: 2011Q3

REPORT INFORMATION
  Report Type: 
  Country: None (occurrence: None)
  Receive Date: 20110805
  Receipt Date: 20110721
  Transmission Date: 20111222
  Serious: Yes (Hospitalization, Other)
  Sender: FDA-Public Use
  Company Number: 2011MA009234

PATIENT
  Age: 49 Year
  Sex: Male

DRUGS (1)
  1. PHENYTOIN [Suspect]
     Indication: EPILEPSY
     Dosage: 100 MG;TID

REACTIONS (7)
  - DRUG INTERACTION [None]
  - FALL [None]
  - BLISTER [None]
  - CONVULSION [None]
  - PSEUDOMONAS INFECTION [None]
  - STAPHYLOCOCCAL INFECTION [None]
  - ANTICONVULSANT DRUG LEVEL DECREASED [None]
